FAERS Safety Report 8253950-2 (Version None)
Quarter: 2012Q2

REPORT INFORMATION
  Report Type: 
  Country: None (occurrence: None)
  Receive Date: 20120402
  Receipt Date: 20120318
  Transmission Date: 20120825
  Serious: Yes (Other)
  Sender: FDA-Public Use
  Company Number: US-AMGEN-USASP2012017355

PATIENT

DRUGS (2)
  1. ENBREL [Suspect]
     Indication: PSORIATIC ARTHROPATHY
     Dosage: UNK UNK, Q6WK
  2. NAPROXEN [Concomitant]
     Dosage: UNK

REACTIONS (1)
  - CUTANEOUS LUPUS ERYTHEMATOSUS [None]
